FAERS Safety Report 18811442 (Version 2)
Quarter: 2021Q1

REPORT INFORMATION
  Report Type: Spontaneous
  Country: US (occurrence: US)
  Receive Date: 20210130
  Receipt Date: 20210209
  Transmission Date: 20210419
  Serious: Yes (Life-Threatening, Hospitalization, Other)
  Sender: FDA-Public Use
  Company Number: US-TORRENT-00010688

PATIENT
  Age: 10 Year
  Sex: Male
  Weight: 27 kg

DRUGS (6)
  1. FLUPHENAZINE [Suspect]
     Active Substance: FLUPHENAZINE
     Indication: BEHAVIOUR DISORDER
     Dosage: 2.5MG/5ML ELIXIR VIA G TUBE
     Route: 048
  2. RISPERIDONE ORAL SOLUTION [Suspect]
     Active Substance: RISPERIDONE
     Indication: BEHAVIOUR DISORDER
     Dosage: VIA G TUBE
     Route: 048
  3. CLOBAZAM. [Concomitant]
     Active Substance: CLOBAZAM
     Indication: BEHAVIOUR DISORDER
     Dosage: UNKNOWN
  4. VALPROIC ACID. [Concomitant]
     Active Substance: VALPROIC ACID
     Indication: BEHAVIOUR DISORDER
     Dosage: UNKNOWN
  5. CLONIDINE. [Concomitant]
     Active Substance: CLONIDINE
     Indication: BEHAVIOUR DISORDER
     Dosage: UNKNOWN
  6. CANNABIDIOL [Concomitant]
     Active Substance: CANNABIDIOL
     Indication: BEHAVIOUR DISORDER
     Dosage: UNKNOWN

REACTIONS (2)
  - Neuroleptic malignant syndrome [Recovered/Resolved]
  - Encephalopathy [Recovered/Resolved]
